FAERS Safety Report 7999343-4 (Version None)
Quarter: 2011Q4

REPORT INFORMATION
  Report Type: 
  Country: None (occurrence: None)
  Receive Date: 20111221
  Receipt Date: 20111213
  Transmission Date: 20120403
  Serious: Yes (Life-Threatening)
  Sender: FDA-Public Use
  Company Number: GB-MEDIMMUNE-MEDI-0014188

PATIENT
  Age: 73 Day
  Sex: Male
  Weight: 2.01 kg

DRUGS (7)
  1. SODIUM FEREDETATE [Concomitant]
     Dates: start: 20111028
  2. FLUARIX [Suspect]
     Route: 030
     Dates: start: 20111115, end: 20111115
  3. DALIVIT [Concomitant]
     Dates: start: 20111028
  4. SYNAGIS [Suspect]
     Route: 030
     Dates: start: 20111115, end: 20111115
  5. PREVENAR [Concomitant]
     Route: 030
     Dates: start: 20111102, end: 20111102
  6. FOLIC ACID [Concomitant]
     Dates: start: 20111028
  7. PEDIACEL [Concomitant]
     Route: 030
     Dates: start: 20111102, end: 20111102

REACTIONS (1)
  - APNOEA [None]
